FAERS Safety Report 11487911 (Version 2)
Quarter: 2015Q4

REPORT INFORMATION
  Report Type: Spontaneous
  Country: JP (occurrence: JP)
  Receive Date: 20150909
  Receipt Date: 20151019
  Transmission Date: 20160304
  Serious: Yes (Death)
  Sender: FDA-Public Use
  Company Number: JP-PFIZER INC-2015296986

PATIENT
  Age: 5 Year
  Sex: Female
  Weight: 8 kg

DRUGS (3)
  1. THYRADIN S [Suspect]
     Active Substance: LEVOTHYROXINE SODIUM
     Indication: HYPOTHYROIDISM
     Dosage: 15 ?G, 1X/DAY
     Route: 048
     Dates: start: 20071025, end: 2009
  2. GENOTROPIN [Suspect]
     Active Substance: SOMATROPIN
     Indication: PRADER-WILLI SYNDROME
     Dosage: 0.2 MG, DAILY
     Route: 058
     Dates: start: 20070426, end: 2009
  3. ENSURE [Suspect]
     Active Substance: AMINO ACIDS\DEXTROSE\ELECTROLYTES NOS\SOYBEAN OIL\VITAMINS

REACTIONS (3)
  - Fall [None]
  - Blood antidiuretic hormone increased [None]
  - Sudden death [Fatal]

NARRATIVE: CASE EVENT DATE: 2009
